FAERS Safety Report 12474803 (Version 1)
Quarter: 2016Q2

REPORT INFORMATION
  Report Type: Other
  Country: BR (occurrence: BR)
  Receive Date: 20160617
  Receipt Date: 20160617
  Transmission Date: 20160815
  Serious: Yes (Other)
  Sender: FDA-Public Use
  Company Number: BR-SHIRE-BR201607355

PATIENT
  Age: 15 Year
  Sex: Male

DRUGS (3)
  1. DIPYRONE [Concomitant]
     Active Substance: DIPYRONE
     Indication: PREMEDICATION
     Dosage: 1 VIAL, UNKNOWN
     Route: 065
  2. ELAPRASE [Suspect]
     Active Substance: IDURSULFASE
     Indication: MUCOPOLYSACCHARIDOSIS II
     Dosage: 18 MG (3 VIALS), UNKNOWN
     Route: 041
     Dates: start: 20130305
  3. HYDROCORTISONE. [Concomitant]
     Active Substance: HYDROCORTISONE
     Indication: PREMEDICATION
     Dosage: 100 MG, UNKNOWN
     Route: 065

REACTIONS (6)
  - Ear infection [Not Recovered/Not Resolved]
  - Dysplasia [Unknown]
  - Productive cough [Not Recovered/Not Resolved]
  - Pulmonary congestion [Unknown]
  - Influenza [Not Recovered/Not Resolved]
  - Complication associated with device [Unknown]

NARRATIVE: CASE EVENT DATE: 201508
